FAERS Safety Report 19477429 (Version 1)
Quarter: 2021Q2

REPORT INFORMATION
  Report Type: Spontaneous
  Country: US (occurrence: US)
  Receive Date: 20210630
  Receipt Date: 20210630
  Transmission Date: 20210717
  Serious: No
  Sender: FDA-Public Use
  Company Number: US-PFIZER INC-2021605412

PATIENT
  Age: 47 Year
  Sex: Female

DRUGS (4)
  1. LETROZOLE. [Concomitant]
     Active Substance: LETROZOLE
     Dosage: UNK
  2. IBRANCE [Suspect]
     Active Substance: PALBOCICLIB
     Dosage: 100 MG, CYCLIC (DAILY FOR 21 DAYS)
     Route: 048
  3. IBRANCE [Suspect]
     Active Substance: PALBOCICLIB
     Indication: BREAST CANCER
     Dosage: 125 MG, CYCLIC (DAILY FOR 21 DAYS)
     Route: 048
     Dates: start: 20210408, end: 202105
  4. VITAMIN D3 [Concomitant]
     Active Substance: CHOLECALCIFEROL
     Dosage: UNK

REACTIONS (5)
  - Headache [Unknown]
  - Blood count abnormal [Unknown]
  - Pain in extremity [Unknown]
  - White blood cell count decreased [Unknown]
  - Neutrophil count decreased [Unknown]
